FAERS Safety Report 5293051-9 (Version None)
Quarter: 2007Q2

REPORT INFORMATION
  Report Type: 
  Country: None (occurrence: None)
  Receive Date: 20070411
  Receipt Date: 20070329
  Transmission Date: 20071010
  Serious: Yes (Other)
  Sender: FDA-Public Use
  Company Number: PHNU2007DE01383

PATIENT
  Sex: Female

DRUGS (1)
  1. FEMARA [Suspect]
     Indication: BREAST CANCER
     Dosage: 2.5 MG, QD
     Route: 048
     Dates: start: 20051001

REACTIONS (4)
  - AGEUSIA [None]
  - HYPERPATHIA [None]
  - TRIGEMINAL NERVE DISORDER [None]
  - TRIGEMINAL NEURALGIA [None]
